FAERS Safety Report 4703797-6 (Version None)
Quarter: 2005Q2

REPORT INFORMATION
  Report Type: 
  Country: None (occurrence: None)
  Receive Date: 20050630
  Receipt Date: 20050616
  Transmission Date: 20051028
  Serious: Yes (Death)
  Sender: FDA-Public Use
  Company Number: KR-JNJFOC-20050604793

PATIENT
  Sex: Male
  Weight: 45 kg

DRUGS (8)
  1. SPORANOX [Suspect]
     Route: 042
  2. SPORANOX [Suspect]
     Route: 042
  3. CEFTAZIDIME PENTAHYDRATE [Concomitant]
     Route: 042
     Dates: start: 20050206, end: 20050212
  4. NETILMICIN SULFATE [Concomitant]
     Route: 042
     Dates: start: 20050206, end: 20050301
  5. VANCOMYCIN [Concomitant]
     Route: 042
     Dates: start: 20050214, end: 20050301
  6. PREPENEM [Concomitant]
     Route: 042
     Dates: start: 20050213, end: 20050301
  7. PREPENEM [Concomitant]
     Route: 042
     Dates: start: 20050213, end: 20050301
  8. GRASIN [Concomitant]
     Indication: NEUTROPENIA
     Route: 042
     Dates: start: 20050215, end: 20050301

REACTIONS (2)
  - HAEMORRHAGE INTRACRANIAL [None]
  - PULMONARY HAEMORRHAGE [None]
